FAERS Safety Report 13062753 (Version 1)
Quarter: 2016Q4

REPORT INFORMATION
  Report Type: Report from Study
  Country: MX (occurrence: MX)
  Receive Date: 20161226
  Receipt Date: 20161226
  Transmission Date: 20170207
  Serious: Yes (Other)
  Sender: FDA-Public Use
  Company Number: PHHY2016MX144523

PATIENT
  Age: 84 Year
  Sex: Male

DRUGS (6)
  1. KETOSTERIL [Concomitant]
     Active Substance: AMINO ACIDS
     Indication: PRODUCT USED FOR UNKNOWN INDICATION
     Route: 065
  2. GALVUS MET [Suspect]
     Active Substance: METFORMIN HYDROCHLORIDE\VILDAGLIPTIN
     Indication: DIABETES MELLITUS
     Dosage: 2 DF (METFORMIN 500 MG, VILDAGLIPTIN 50 MG), QD
     Route: 048
     Dates: start: 201609, end: 20161111
  3. INSULIN [Concomitant]
     Active Substance: INSULIN NOS
     Indication: DIABETES MELLITUS
     Dosage: (8 YEARS AGO)
     Route: 065
  4. EXFORGE HCT [Suspect]
     Active Substance: AMLODIPINE BESYLATE\HYDROCHLOROTHIAZIDE\VALSARTAN
     Indication: HYPERTENSION
     Dosage: 0.5 DF (AMLODIPINE 10 MG/HYDROCHLOROTHIAZIDE 25 MG/VALSARTAN 320 MG), QD AT NOON
     Route: 048
     Dates: start: 2014, end: 20161111
  5. EXFORGE HCT [Suspect]
     Active Substance: AMLODIPINE BESYLATE\HYDROCHLOROTHIAZIDE\VALSARTAN
     Indication: BLOOD PRESSURE INCREASED
     Dosage: (AMLODIPINE 10MG, VALSARTAN 320MG, HYDROCHLOROTHIAZIDE 25MG)
     Route: 065
     Dates: start: 20161220
  6. DIAZOLIN [Concomitant]
     Indication: DIABETES MELLITUS
     Route: 065
     Dates: start: 201609, end: 201611

REACTIONS (4)
  - Peritoneal neoplasm [Recovering/Resolving]
  - Abdominal mass [Recovered/Resolved]
  - Constipation [Recovered/Resolved]
  - Blood pressure decreased [Unknown]

NARRATIVE: CASE EVENT DATE: 201609
